FAERS Safety Report 5518689-2 (Version None)
Quarter: 2007Q4

REPORT INFORMATION
  Report Type: 
  Country: None (occurrence: None)
  Receive Date: 20071115
  Receipt Date: 20071102
  Transmission Date: 20080405
  Serious: Yes (Other)
  Sender: FDA-Public Use
  Company Number: US-SHR-US-2007-042670

PATIENT
  Age: 39 Year
  Sex: Male
  Weight: 92.971 kg

DRUGS (8)
  1. BETASERON [Suspect]
     Indication: RELAPSING-REMITTING MULTIPLE SCLEROSIS
     Dosage: 8 MIU, EVERY 2D
     Route: 058
     Dates: start: 20030101, end: 20070915
  2. BETASERON [Suspect]
     Dosage: 8 MIU, EVERY 2D
     Route: 058
     Dates: start: 20071025
  3. NEURONTIN [Concomitant]
     Dosage: 600 MG, 3X/DAY
     Route: 048
     Dates: start: 20070501, end: 20070915
  4. NEURONTIN [Concomitant]
     Dosage: 600 MG, 3X/DAY
     Route: 048
     Dates: start: 20071025
  5. ZANAFLEX [Concomitant]
     Dosage: 4 MG, 2X/DAY
     Route: 048
     Dates: start: 20070501, end: 20070915
  6. ZANAFLEX [Concomitant]
     Dosage: 4 MG, 2X/DAY
     Route: 048
     Dates: start: 20071025
  7. CITALOPRAM HYDROBROMIDE [Concomitant]
     Indication: ANXIETY
     Dosage: 20 MG, 1X/DAY
     Route: 048
     Dates: start: 20070501, end: 20070915
  8. CITALOPRAM HYDROBROMIDE [Concomitant]
     Dosage: 20 MG, 1X/DAY
     Route: 048
     Dates: start: 20071025

REACTIONS (9)
  - ANOREXIA [None]
  - BARRETT'S OESOPHAGUS [None]
  - DRUG DOSE OMISSION [None]
  - GASTROOESOPHAGEAL REFLUX DISEASE [None]
  - HERPES VIRUS INFECTION [None]
  - INJECTION SITE BRUISING [None]
  - INJECTION SITE PAIN [None]
  - RETINAL DETACHMENT [None]
  - WEIGHT DECREASED [None]
